FAERS Safety Report 4637874-5 (Version None)
Quarter: 2005Q2

REPORT INFORMATION
  Report Type: 
  Country: None (occurrence: None)
  Receive Date: 20050418
  Receipt Date: 20050304
  Transmission Date: 20051028
  Serious: Yes (Hospitalization, Other)
  Sender: FDA-Public Use
  Company Number: PHFR2005GB01105

PATIENT
  Age: 26 Year
  Sex: Male

DRUGS (2)
  1. CLOZARIL [Suspect]
     Indication: SCHIZOPHRENIA
     Dosage: UNK, UNK
     Route: 048
     Dates: start: 20050209, end: 20050301
  2. VALPROATE SODIUM [Concomitant]
     Indication: EPILEPSY
     Dosage: 1000 MG, BID
     Route: 048
     Dates: start: 20050201

REACTIONS (21)
  - AUTOIMMUNE DISORDER [None]
  - BLOOD CREATININE INCREASED [None]
  - BLOOD UREA INCREASED [None]
  - C-REACTIVE PROTEIN INCREASED [None]
  - CONFUSIONAL STATE [None]
  - CONSTIPATION [None]
  - CONVULSION [None]
  - DELIRIUM [None]
  - ENURESIS [None]
  - HAEMOGLOBIN DECREASED [None]
  - HYPERPYREXIA [None]
  - LYMPHOCYTE COUNT DECREASED [None]
  - MALAISE [None]
  - PERICARDIAL EFFUSION [None]
  - PERICARDITIS [None]
  - PERITONITIS [None]
  - RENAL FAILURE [None]
  - SALIVARY HYPERSECRETION [None]
  - SEDATION [None]
  - TACHYCARDIA [None]
  - VOMITING [None]
